FAERS Safety Report 21809726 (Version 1)
Quarter: 2023Q1

REPORT INFORMATION
  Report Type: Spontaneous
  Country: US (occurrence: US)
  Receive Date: 20230103
  Receipt Date: 20230103
  Transmission Date: 20230418
  Serious: Yes (Hospitalization)
  Sender: FDA-Public Use
  Company Number: US-ALKEM LABORATORIES LIMITED-US-ALKEM-2022-13979

PATIENT
  Age: 43 Year
  Sex: Female

DRUGS (3)
  1. VENLAFAXINE [Suspect]
     Active Substance: VENLAFAXINE HYDROCHLORIDE
     Indication: Neck pain
     Dosage: UNK
     Route: 065
     Dates: start: 2014
  2. VENLAFAXINE [Suspect]
     Active Substance: VENLAFAXINE HYDROCHLORIDE
     Indication: Back pain
     Dosage: 75 MILLIGRAM, QD (DAILY) (TITRATED UPWARD)
     Route: 065
  3. VENLAFAXINE [Suspect]
     Active Substance: VENLAFAXINE HYDROCHLORIDE
     Dosage: 37.5 MILLIGRAM, (EVERY 48 HOURS) (TAPER)
     Route: 065

REACTIONS (1)
  - Withdrawal syndrome [Recovered/Resolved]
